FAERS Safety Report 23034520 (Version 1)
Quarter: 2023Q4

REPORT INFORMATION
  Report Type: Spontaneous
  Country: US (occurrence: None)
  Receive Date: 20231005
  Receipt Date: 20231005
  Transmission Date: 20240109
  Serious: No
  Sender: FDA-Public Use
  Company Number: None

PATIENT
  Age: 52 Year
  Sex: Male

DRUGS (2)
  1. INLYTA [Suspect]
     Active Substance: AXITINIB
     Dosage: FREQUENCY : DAILY;?
     Route: 048
  2. INLYTA [Concomitant]
     Active Substance: AXITINIB
     Dates: start: 20230808

REACTIONS (2)
  - Dysphagia [None]
  - Dysphonia [None]
